FAERS Safety Report 9203481 (Version 1)
Quarter: 2013Q2

REPORT INFORMATION
  Report Type: Spontaneous
  Country: US (occurrence: US)
  Receive Date: 20130402
  Receipt Date: 20130402
  Transmission Date: 20140414
  Serious: No
  Sender: FDA-Public Use
  Company Number: US-PFIZER INC-2013100738

PATIENT
  Age: 20 Year
  Sex: Female
  Weight: 63.5 kg

DRUGS (5)
  1. LYRICA [Suspect]
     Indication: AFFECTIVE DISORDER
     Dosage: 200 MG, 2X/DAY
     Dates: start: 201002, end: 20130322
  2. ZOLOFT [Suspect]
     Dosage: UNK
  3. WELLBUTRIN [Suspect]
     Dosage: UNK
  4. TEGRETOL [Suspect]
     Dosage: UNK
  5. ADDERALL [Concomitant]
     Dosage: 20 MG, 2X/DAY

REACTIONS (5)
  - Off label use [Unknown]
  - Drug ineffective [Unknown]
  - Hyperhidrosis [Unknown]
  - Hot flush [Unknown]
  - Mental disorder [Unknown]
